FAERS Safety Report 4340953-3 (Version None)
Quarter: 2004Q2

REPORT INFORMATION
  Report Type: 
  Country: None (occurrence: None)
  Receive Date: 20040413
  Receipt Date: 20040401
  Transmission Date: 20050107
  Serious: Yes (Death)
  Sender: FDA-Public Use
  Company Number: 163-20785-04030076

PATIENT
  Age: 68 Year
  Sex: Female

DRUGS (2)
  1. THALOMID [Suspect]
     Indication: BREAST CANCER FEMALE
     Dosage: 100 MG, QD, ORAL; QD, ORAL
     Route: 048
     Dates: start: 20030701, end: 20030801
  2. THALOMID [Suspect]
     Indication: BREAST CANCER FEMALE
     Dosage: 100 MG, QD, ORAL; QD, ORAL
     Route: 048
     Dates: start: 20030801, end: 20030821

REACTIONS (1)
  - RASH MACULO-PAPULAR [None]
